FAERS Safety Report 4277768-0 (Version None)
Quarter: 2004Q1

REPORT INFORMATION
  Report Type: 
  Country: None (occurrence: None)
  Receive Date: 20040121
  Receipt Date: 20040108
  Transmission Date: 20041129
  Serious: Yes (Life-Threatening, Hospitalization, Other)
  Sender: FDA-Public Use
  Company Number: 2003024621

PATIENT
  Age: 3 Year
  Sex: Female
  Weight: 16 kg

DRUGS (1)
  1. ZARONTIN [Suspect]
     Indication: MYOCLONUS
     Dosage: 400 MG (DAILY) ORAL
     Route: 048
     Dates: start: 20021212, end: 20030306

REACTIONS (7)
  - ANAEMIA [None]
  - ASCITES [None]
  - FACE OEDEMA [None]
  - PERICARDITIS [None]
  - PLEURISY [None]
  - POLYSEROSITIS [None]
  - SYSTEMIC LUPUS ERYTHEMATOSUS [None]
